FAERS Safety Report 25413208 (Version 4)
Quarter: 2025Q3

REPORT INFORMATION
  Report Type: Spontaneous
  Country: US (occurrence: US)
  Receive Date: 20250609
  Receipt Date: 20250815
  Transmission Date: 20251021
  Serious: Yes (Life-Threatening, Other)
  Sender: PFIZER
  Company Number: US-PFIZER INC-PV202500049554

PATIENT
  Age: 53 Year
  Sex: Female

DRUGS (8)
  1. TUKYSA [Suspect]
     Active Substance: TUCATINIB
     Dosage: 2 TABLETS TWICE DAILY
     Dates: start: 202504
  2. TUKYSA [Suspect]
     Active Substance: TUCATINIB
     Dosage: 150MG 1 TABLET TWICE DAILY AND 50MG 1 TABLET TWICE DAILY
  3. TUKYSA [Suspect]
     Active Substance: TUCATINIB
     Dosage: TUKYSA 150MG WITH A DOSING 300 MG DAILY
  4. XELODA [Suspect]
     Active Substance: CAPECITABINE
  5. HYDROCODONE [Concomitant]
     Active Substance: HYDROCODONE
  6. OMEPRAZOLE [Concomitant]
     Active Substance: OMEPRAZOLE
  7. NORCO [Concomitant]
     Active Substance: ACETAMINOPHEN\HYDROCODONE BITARTRATE
  8. XANAX [Concomitant]
     Active Substance: ALPRAZOLAM

REACTIONS (5)
  - Diarrhoea [Not Recovered/Not Resolved]
  - Weight decreased [Unknown]
  - Malignant neoplasm progression [Unknown]
  - Rash [Recovered/Resolved]
  - Photosensitivity reaction [Unknown]

NARRATIVE: CASE EVENT DATE: 20250101
